FAERS Safety Report 23014806 (Version 2)
Quarter: 2023Q4

REPORT INFORMATION
  Report Type: Report from Study
  Country: GB (occurrence: GB)
  Receive Date: 20231002
  Receipt Date: 20231005
  Transmission Date: 20240109
  Serious: Yes (Death, Hospitalization)
  Sender: FDA-Public Use
  Company Number: GB-BoehringerIngelheim-2021-BI-115402

PATIENT
  Age: 50 Year
  Sex: Female
  Weight: 60.3 kg

DRUGS (1)
  1. ALTEPLASE [Suspect]
     Active Substance: ALTEPLASE
     Indication: Ischaemic stroke
     Dosage: FREQUENCY ONCE?DATE OF MOST RECENT DOSE OF ALTEPLASE: 02/JUL/2021
     Route: 042
     Dates: start: 20210630

REACTIONS (2)
  - Pancreatic carcinoma metastatic [Fatal]
  - Cerebrovascular accident [Fatal]

NARRATIVE: CASE EVENT DATE: 20210707
